FAERS Safety Report 16419089 (Version 2)
Quarter: 2021Q4

REPORT INFORMATION
  Report Type: Spontaneous
  Country: CA (occurrence: CA)
  Receive Date: 20190612
  Receipt Date: 20211029
  Transmission Date: 20220303
  Serious: Yes (Other)
  Sender: FDA-Public Use
  Company Number: CA-AUROBINDO-AUR-APL-2019-032000

PATIENT
  Sex: Female

DRUGS (24)
  1. CITALOPRAM [Suspect]
     Active Substance: CITALOPRAM HYDROBROMIDE
     Indication: Anxiety
     Dosage: UNK
     Route: 065
  2. CITALOPRAM [Suspect]
     Active Substance: CITALOPRAM HYDROBROMIDE
     Indication: Depression
  3. CITALOPRAM [Suspect]
     Active Substance: CITALOPRAM HYDROBROMIDE
     Indication: Panic attack
  4. FLUOXETINE [Suspect]
     Active Substance: FLUOXETINE HYDROCHLORIDE
     Indication: Panic attack
     Dosage: UNK
     Route: 065
  5. FLUOXETINE [Suspect]
     Active Substance: FLUOXETINE HYDROCHLORIDE
     Indication: Depression
  6. FLUOXETINE [Suspect]
     Active Substance: FLUOXETINE HYDROCHLORIDE
     Indication: Anxiety
  7. PAROXETINE [Suspect]
     Active Substance: PAROXETINE
     Indication: Panic attack
     Dosage: UNK
     Route: 065
  8. PAROXETINE [Suspect]
     Active Substance: PAROXETINE
     Indication: Depression
  9. PAROXETINE [Suspect]
     Active Substance: PAROXETINE
     Indication: Anxiety
  10. PAROXETINE [Suspect]
     Active Substance: PAROXETINE
     Indication: Panic attack
     Dosage: UNK
     Route: 065
  11. PAROXETINE [Suspect]
     Active Substance: PAROXETINE
     Indication: Depression
  12. PAROXETINE [Suspect]
     Active Substance: PAROXETINE
     Indication: Anxiety
  13. SERTRALINE [Suspect]
     Active Substance: SERTRALINE HYDROCHLORIDE
     Indication: Panic attack
     Dosage: UNK
     Route: 065
  14. SERTRALINE [Suspect]
     Active Substance: SERTRALINE HYDROCHLORIDE
     Indication: Depression
  15. SERTRALINE [Suspect]
     Active Substance: SERTRALINE HYDROCHLORIDE
     Indication: Anxiety
  16. BUSPIRONE HYDROCHLORIDE [Suspect]
     Active Substance: BUSPIRONE HYDROCHLORIDE
     Indication: Panic attack
     Dosage: UNK
     Route: 065
  17. BUSPIRONE HYDROCHLORIDE [Suspect]
     Active Substance: BUSPIRONE HYDROCHLORIDE
     Indication: Depression
  18. BUSPIRONE HYDROCHLORIDE [Suspect]
     Active Substance: BUSPIRONE HYDROCHLORIDE
     Indication: Anxiety
  19. FLUOXETINE [Suspect]
     Active Substance: FLUOXETINE HYDROCHLORIDE
     Indication: Panic attack
     Dosage: UNK
     Route: 065
  20. FLUOXETINE [Suspect]
     Active Substance: FLUOXETINE HYDROCHLORIDE
     Indication: Depression
  21. FLUOXETINE [Suspect]
     Active Substance: FLUOXETINE HYDROCHLORIDE
     Indication: Anxiety
  22. XANAX [Suspect]
     Active Substance: ALPRAZOLAM
     Indication: Panic attack
     Dosage: UNK
     Route: 065
  23. XANAX [Suspect]
     Active Substance: ALPRAZOLAM
     Indication: Depression
  24. XANAX [Suspect]
     Active Substance: ALPRAZOLAM
     Indication: Anxiety

REACTIONS (5)
  - Drug use disorder [Unknown]
  - Drug dependence [Unknown]
  - Product complaint [Unknown]
  - Product quality issue [Unknown]
  - Drug ineffective [Unknown]
